FAERS Safety Report 6967556-6 (Version None)
Quarter: 2010Q3

REPORT INFORMATION
  Report Type: 
  Country: None (occurrence: None)
  Receive Date: 20100907
  Receipt Date: 20100831
  Transmission Date: 20110219
  Serious: Yes (Other)
  Sender: FDA-Public Use
  Company Number: US-BRISTOL-MYERS SQUIBB COMPANY-15263296

PATIENT
  Age: 47 Year
  Sex: Female
  Weight: 82 kg

DRUGS (3)
  1. KENALOG-10 [Suspect]
     Dates: start: 20100818
  2. TOPAMAX [Concomitant]
  3. ATENOLOL [Concomitant]

REACTIONS (8)
  - ACNE [None]
  - BLOOD PRESSURE INCREASED [None]
  - DYSPEPSIA [None]
  - FLATULENCE [None]
  - HEART RATE INCREASED [None]
  - INSOMNIA [None]
  - MIGRAINE [None]
  - SWELLING FACE [None]
